FAERS Safety Report 21707060 (Version 2)
Quarter: 2022Q4

REPORT INFORMATION
  Report Type: Report from Study
  Country: CN (occurrence: CN)
  Receive Date: 20221209
  Receipt Date: 20221216
  Transmission Date: 20230112
  Serious: Yes (Hospitalization)
  Sender: FDA-Public Use
  Company Number: CN-KARYOPHARM-2022KPT001512

PATIENT
  Age: 60 Year
  Sex: Female
  Weight: 68 kg

DRUGS (5)
  1. SELINEXOR [Suspect]
     Active Substance: SELINEXOR
     Indication: Plasma cell myeloma
     Dosage: 100 MG, QD
     Route: 048
     Dates: start: 20220823, end: 20221004
  2. SELINEXOR [Suspect]
     Active Substance: SELINEXOR
     Dosage: 80 MG, QD
     Route: 048
     Dates: start: 20221011, end: 20221128
  3. BORTEZOMIB [Suspect]
     Active Substance: BORTEZOMIB
     Indication: Plasma cell myeloma
     Dosage: 2.3 MG, QD
     Route: 058
     Dates: start: 20220823, end: 20221128
  4. DEXAMETHASONE [Suspect]
     Active Substance: DEXAMETHASONE
     Indication: Plasma cell myeloma
     Dosage: 20 MG, QD
     Route: 048
     Dates: start: 20220823, end: 20221128
  5. NETILMICIN SULFATE [Concomitant]
     Active Substance: NETILMICIN SULFATE
     Dosage: UNK
     Dates: start: 20221126

REACTIONS (1)
  - Bronchitis [Recovered/Resolved]

NARRATIVE: CASE EVENT DATE: 20221126
